FAERS Safety Report 7471003-8 (Version None)
Quarter: 2011Q2

REPORT INFORMATION
  Report Type: 
  Country: None (occurrence: None)
  Receive Date: 20110502
  Receipt Date: 20110420
  Transmission Date: 20111010
  Serious: Yes (Other)
  Sender: FDA-Public Use
  Company Number: 2011SP018314

PATIENT
  Age: 35 Year
  Sex: Female
  Weight: 73.5 kg

DRUGS (2)
  1. DESOGESTRE/ETHINYL ESTRADIOL [Suspect]
     Indication: CONTRACEPTION
     Dosage: PO
     Route: 048
     Dates: start: 20000101, end: 20070101
  2. DESOGESTRE/ETHINYL ESTRADIOL [Suspect]
     Indication: CONTRACEPTION
     Dosage: PO
     Route: 048
     Dates: start: 20110201, end: 20110301

REACTIONS (1)
  - BREAST MASS [None]
